FAERS Safety Report 9677109 (Version 1)
Quarter: 2013Q4

REPORT INFORMATION
  Report Type: Report from Study
  Country: US (occurrence: US)
  Receive Date: 20131108
  Receipt Date: 20131108
  Transmission Date: 20140711
  Serious: Yes (Hospitalization)
  Sender: FDA-Public Use
  Company Number: US-ROCHE-1301177

PATIENT
  Age: 47 Year
  Sex: Male
  Weight: 90.8 kg

DRUGS (1)
  1. XOLAIR [Suspect]
     Indication: ASTHMA
     Route: 058
     Dates: start: 2013

REACTIONS (1)
  - Salivary gland disorder [Not Recovered/Not Resolved]
